FAERS Safety Report 8122208-4 (Version None)
Quarter: 2011Q4

REPORT INFORMATION
  Report Type: 
  Country: None (occurrence: None)
  Receive Date: 20111227
  Receipt Date: 20110919
  Transmission Date: 20120403
  Serious: No
  Sender: FDA-Public Use
  Company Number: PHHY2011US50276

PATIENT
  Sex: Male

DRUGS (1)
  1. GILENYA [Suspect]
     Indication: MULTIPLE SCLEROSIS
     Dosage: 0.5 MG, QD, ORAL
     Route: 048
     Dates: start: 20110209, end: 20110601

REACTIONS (4)
  - PSYCHOMOTOR HYPERACTIVITY [None]
  - INSOMNIA [None]
  - BURNING SENSATION [None]
  - PAIN IN EXTREMITY [None]
